FAERS Safety Report 13297403 (Version 1)
Quarter: 2017Q1

REPORT INFORMATION
  Report Type: Spontaneous
  Country: US (occurrence: US)
  Receive Date: 20170303
  Receipt Date: 20170303
  Transmission Date: 20170428
  Serious: No
  Sender: FDA-Public Use
  Company Number: None

PATIENT
  Age: 22 Year
  Sex: Female
  Weight: 70 kg

DRUGS (8)
  1. LAMOTROGINE [Concomitant]
     Active Substance: LAMOTRIGINE
  2. EUCERIN ATO-CONTROL [Concomitant]
  3. TACROLIMUS. [Concomitant]
     Active Substance: TACROLIMUS
  4. ASCABIOL EMULSION BENZYLBENZOATE [Suspect]
     Active Substance: BENZYL BENZOATE
     Indication: PROPHYLAXIS
     Dosage: ?          QUANTITY:1 APPLICATION;OTHER FREQUENCY:SINGLE APPLICATION;?
     Route: 061
  5. AZATHIOPRINE. [Concomitant]
     Active Substance: AZATHIOPRINE
  6. ESCITALOPRAM [Concomitant]
     Active Substance: ESCITALOPRAM OXALATE
  7. ASCABIOL EMULSION BENZYLBENZOATE [Suspect]
     Active Substance: BENZYL BENZOATE
     Indication: ACARODERMATITIS
     Dosage: ?          QUANTITY:1 APPLICATION;OTHER FREQUENCY:SINGLE APPLICATION;?
     Route: 061
  8. ADVANTAN [Concomitant]
     Active Substance: CORTICOSTEROID NOS

REACTIONS (6)
  - Burning sensation [None]
  - Eczema [None]
  - Pain [None]
  - Dysstasia [None]
  - Muscle twitching [None]
  - Hypopnoea [None]

NARRATIVE: CASE EVENT DATE: 20170303
